FAERS Safety Report 9913078 (Version 1)
Quarter: 2014Q1

REPORT INFORMATION
  Report Type: Spontaneous
  Country: US (occurrence: None)
  Receive Date: 20140214
  Receipt Date: 20140214
  Transmission Date: 20141002
  Serious: Yes (Other)
  Sender: FDA-Public Use
  Company Number: AUR-APL-2014-01482

PATIENT
  Sex: 0

DRUGS (1)
  1. CEFTRIAXONE (CEFTRIAXONE) [Suspect]
     Indication: APPENDICITIS PERFORATED
     Route: 041

REACTIONS (3)
  - Cholelithiasis [None]
  - Cholelithiasis [None]
  - Cholecystitis chronic [None]
